FAERS Safety Report 8176741-X (Version None)
Quarter: 2012Q1

REPORT INFORMATION
  Report Type: 
  Country: None (occurrence: None)
  Receive Date: 20120228
  Receipt Date: 20120202
  Transmission Date: 20120608
  Serious: Yes (Hospitalization, Other)
  Sender: FDA-Public Use
  Company Number: 2135225-2011-00052

PATIENT
  Sex: Female

DRUGS (1)
  1. LAUROMACROGOL SUBMUCOSAL [Suspect]

REACTIONS (4)
  - CAESAREAN SECTION [None]
  - MATERNAL EXPOSURE DURING PREGNANCY [None]
  - PREMATURE SEPARATION OF PLACENTA [None]
  - PREMATURE BABY [None]
